FAERS Safety Report 6672469-3 (Version None)
Quarter: 2010Q2

REPORT INFORMATION
  Report Type: 
  Country: None (occurrence: None)
  Receive Date: 20100408
  Receipt Date: 20100406
  Transmission Date: 20101027
  Serious: Yes (Hospitalization)
  Sender: FDA-Public Use
  Company Number: GB-ASTRAZENECA-2010SE05561

PATIENT
  Sex: Female
  Weight: 50.8 kg

DRUGS (8)
  1. SEROQUEL [Suspect]
     Indication: MAJOR DEPRESSION
     Route: 048
  2. SEROQUEL [Suspect]
     Route: 048
  3. SEROQUEL [Suspect]
     Route: 048
  4. SEROQUEL [Suspect]
     Route: 048
     Dates: start: 20090101, end: 20100208
  5. SEROQUEL [Suspect]
     Route: 048
     Dates: start: 20090101, end: 20100208
  6. VENLAFAXINE XL [Concomitant]
     Indication: DEPRESSION
     Route: 048
     Dates: start: 20100101
  7. DIAZEPAM [Concomitant]
     Indication: ANXIETY
     Route: 048
  8. TEMAZEPAM [Concomitant]
     Indication: INSOMNIA
     Route: 048
     Dates: start: 20100101

REACTIONS (4)
  - LYMPHOCYTE COUNT DECREASED [None]
  - MONOCYTE COUNT DECREASED [None]
  - NEUTROPHIL COUNT DECREASED [None]
  - WHITE BLOOD CELL COUNT DECREASED [None]
